FAERS Safety Report 4714453-2 (Version None)
Quarter: 2005Q3

REPORT INFORMATION
  Report Type: 
  Country: None (occurrence: None)
  Receive Date: 20050714
  Receipt Date: 20050601
  Transmission Date: 20060218
  Serious: Yes (Other)
  Sender: FDA-Public Use
  Company Number: PHEH2005US06209

PATIENT
  Age: 54 Year
  Sex: Female

DRUGS (2)
  1. TRILEPTAL [Suspect]
     Dosage: 150 MG, BID
     Route: 048
     Dates: start: 20050524, end: 20050531
  2. LAMICTAL [Suspect]
     Indication: FIBROMYALGIA
     Dosage: UNK, BID

REACTIONS (17)
  - BLOOD CHOLESTEROL INCREASED [None]
  - BLOOD GLUCOSE INCREASED [None]
  - CONSTIPATION [None]
  - DELUSION [None]
  - DRUG INTERACTION [None]
  - DRUG TOXICITY [None]
  - DRY SKIN [None]
  - FLUID RETENTION [None]
  - HEART RATE INCREASED [None]
  - LIVER FUNCTION TEST ABNORMAL [None]
  - MOUTH ULCERATION [None]
  - PARANOIA [None]
  - RASH [None]
  - SCHIZOPHRENIFORM DISORDER [None]
  - SKIN FISSURES [None]
  - STOMACH DISCOMFORT [None]
  - WHITE BLOOD CELL COUNT INCREASED [None]
